FAERS Safety Report 10037260 (Version 3)
Quarter: 2015Q4

REPORT INFORMATION
  Report Type: Spontaneous
  Country: US (occurrence: US)
  Receive Date: 20140326
  Receipt Date: 20151123
  Transmission Date: 20160304
  Serious: Yes (Other)
  Sender: FDA-Public Use
  Company Number: US-BAYER-2014-044005

PATIENT
  Age: 27 Year
  Sex: Female
  Weight: 90.7 kg

DRUGS (2)
  1. YASMIN [Suspect]
     Active Substance: DROSPIRENONE\ETHINYL ESTRADIOL
     Dosage: UNK
     Dates: start: 20070826, end: 20070922
  2. ADVIL [Concomitant]
     Active Substance: IBUPROFEN

REACTIONS (6)
  - Injury [None]
  - Migraine [None]
  - Cerebrovascular accident [None]
  - Pain [None]
  - Visual impairment [None]
  - Dizziness [None]

NARRATIVE: CASE EVENT DATE: 20080118
